FAERS Safety Report 4641703-3 (Version None)
Quarter: 2005Q2

REPORT INFORMATION
  Report Type: 
  Country: None (occurrence: None)
  Receive Date: 20050421
  Receipt Date: 20050228
  Transmission Date: 20051028
  Serious: Yes (Other)
  Sender: FDA-Public Use
  Company Number: BE-AMGEN-UK118334

PATIENT
  Sex: Female
  Weight: 58 kg

DRUGS (4)
  1. NEULASTA [Suspect]
     Indication: CHEMOTHERAPY
     Route: 030
     Dates: start: 20050215
  2. NEUPOGEN [Suspect]
     Indication: CHEMOTHERAPY
     Route: 065
     Dates: start: 20050405, end: 20050405
  3. ELTHYRONE [Concomitant]
  4. OMEPRAZOLE [Concomitant]

REACTIONS (7)
  - ARTHRALGIA [None]
  - ASTHENIA [None]
  - DIZZINESS [None]
  - GENERALISED ERYTHEMA [None]
  - MALAISE [None]
  - MEDICATION ERROR [None]
  - MYALGIA [None]
